FAERS Safety Report 17371595 (Version 1)
Quarter: 2020Q1

REPORT INFORMATION
  Report Type: Spontaneous
  Country: CA (occurrence: CA)
  Receive Date: 20200205
  Receipt Date: 20200205
  Transmission Date: 20200409
  Serious: Yes (Other)
  Sender: FDA-Public Use
  Company Number: CA-DSJP-DSU-2020-103434

PATIENT

DRUGS (12)
  1. APO OLMESARTAN/HCTZ [Suspect]
     Active Substance: HYDROCHLOROTHIAZIDE\OLMESARTAN MEDOXOMIL
     Indication: PRODUCT USED FOR UNKNOWN INDICATION
     Route: 065
  2. RAMIPRIL. [Concomitant]
     Active Substance: RAMIPRIL
     Indication: PRODUCT USED FOR UNKNOWN INDICATION
     Dosage: UNK
     Route: 065
  3. APO OLMESARTAN [Suspect]
     Active Substance: OLMESARTAN MEDOXOMIL
     Indication: PRODUCT USED FOR UNKNOWN INDICATION
     Dosage: UNK
     Route: 065
  4. MARIJUANA [Concomitant]
     Active Substance: CANNABIS SATIVA SUBSP. INDICA TOP
     Indication: PRODUCT USED FOR UNKNOWN INDICATION
     Dosage: UNK
     Route: 065
  5. TEVA TELMISARTAN [Concomitant]
     Active Substance: TELMISARTAN
     Indication: PRODUCT USED FOR UNKNOWN INDICATION
     Dosage: UNK
     Route: 065
  6. LEVOTHYROXINE. [Concomitant]
     Active Substance: LEVOTHYROXINE
     Indication: PRODUCT USED FOR UNKNOWN INDICATION
     Dosage: UNK
     Route: 065
  7. APO-ACETAMINOPHEN [Concomitant]
     Active Substance: ACETAMINOPHEN
     Indication: PRODUCT USED FOR UNKNOWN INDICATION
     Dosage: UNK
     Route: 065
  8. APO-LORAZEPAM [Concomitant]
     Active Substance: LORAZEPAM
     Indication: PRODUCT USED FOR UNKNOWN INDICATION
     Dosage: UNK
     Route: 065
  9. OLMETEC PLUS [Suspect]
     Active Substance: HYDROCHLOROTHIAZIDE\OLMESARTAN MEDOXOMIL
     Indication: BLOOD PRESSURE MANAGEMENT
     Dosage: 1.0 DF, QD
     Route: 048
  10. AURO OLMESARTAN [Suspect]
     Active Substance: OLMESARTAN
     Indication: PRODUCT USED FOR UNKNOWN INDICATION
     Dosage: UNK
     Route: 065
  11. CO LOSARTAN                        /01121602/ [Concomitant]
     Active Substance: LOSARTAN
     Indication: PRODUCT USED FOR UNKNOWN INDICATION
  12. SYNTHROID [Concomitant]
     Active Substance: LEVOTHYROXINE SODIUM
     Indication: PRODUCT USED FOR UNKNOWN INDICATION
     Dosage: UNK
     Route: 065

REACTIONS (49)
  - Angiomyolipoma [Unknown]
  - Bladder pain [Unknown]
  - Discomfort [Unknown]
  - Hot flush [Unknown]
  - Ultrasound liver abnormal [Unknown]
  - X-ray abnormal [Unknown]
  - Blood creatinine increased [Unknown]
  - Dental necrosis [Unknown]
  - Haemorrhage urinary tract [Unknown]
  - Infection [Unknown]
  - Neoplasm [Unknown]
  - Tinnitus [Unknown]
  - Bone density increased [Unknown]
  - Pollakiuria [Unknown]
  - Bone loss [Unknown]
  - Bursitis [Unknown]
  - Chronic kidney disease [Unknown]
  - Confusional state [Unknown]
  - Eye pain [Unknown]
  - Hypertension [Unknown]
  - Renal failure [Unknown]
  - Albumin urine absent [Unknown]
  - Dental caries [Unknown]
  - Gingival bleeding [Unknown]
  - Headache [Unknown]
  - Heart rate increased [Unknown]
  - Pelvic cyst [Unknown]
  - Protein total abnormal [Unknown]
  - Tooth erosion [Unknown]
  - Urinary retention [Unknown]
  - Urticaria [Unknown]
  - Angioedema [Unknown]
  - Foot fracture [Unknown]
  - Tachycardia [Unknown]
  - Tooth fracture [Unknown]
  - Dry mouth [Unknown]
  - Flank pain [Unknown]
  - Glomerular filtration rate abnormal [Unknown]
  - Pain [Unknown]
  - Periodontitis [Unknown]
  - Renal disorder [Unknown]
  - Tooth extraction [Unknown]
  - Tooth infection [Unknown]
  - Urinary tract infection [Unknown]
  - Anxiety [Unknown]
  - Blood triglycerides abnormal [Unknown]
  - Central obesity [Unknown]
  - Fatigue [Unknown]
  - Hypercalcaemia [Unknown]
